FAERS Safety Report 23043469 (Version 1)
Quarter: 2023Q4

REPORT INFORMATION
  Report Type: Spontaneous
  Country: FR (occurrence: FR)
  Receive Date: 20231009
  Receipt Date: 20231009
  Transmission Date: 20240109
  Serious: Yes (Other)
  Sender: FDA-Public Use
  Company Number: FR-ViiV Healthcare Limited-75760

PATIENT

DRUGS (2)
  1. VOCABRIA [Suspect]
     Active Substance: CABOTEGRAVIR SODIUM
     Indication: Product used for unknown indication
     Dosage: UNK
  2. VOCABRIA [Suspect]
     Active Substance: CABOTEGRAVIR SODIUM
     Indication: Product used for unknown indication
     Dosage: UNK

REACTIONS (3)
  - Tracheostomy [Unknown]
  - Dysphagia [Unknown]
  - Treatment noncompliance [Unknown]
